FAERS Safety Report 8453477-9 (Version None)
Quarter: 2012Q2

REPORT INFORMATION
  Report Type: 
  Country: None (occurrence: None)
  Receive Date: 20120620
  Receipt Date: 20120519
  Transmission Date: 20120825
  Serious: No
  Sender: FDA-Public Use
  Company Number: US-VERTEX PHARMACEUTICALS INC.-AE-2012-007418

PATIENT
  Sex: Male
  Weight: 88.53 kg

DRUGS (4)
  1. PEGASYS [Concomitant]
     Indication: HEPATITIS C
     Route: 058
     Dates: start: 20120514
  2. INCIVEK [Suspect]
     Indication: HEPATITIS C
     Route: 048
     Dates: start: 20120514
  3. LISINOPRIL [Concomitant]
     Indication: BLOOD PRESSURE
  4. RIBAVIRIN [Concomitant]
     Indication: HEPATITIS C
     Route: 048
     Dates: start: 20120514

REACTIONS (4)
  - EYE PRURITUS [None]
  - CHAPPED LIPS [None]
  - RASH GENERALISED [None]
  - THROAT IRRITATION [None]
